FAERS Safety Report 8494372-9 (Version None)
Quarter: 2012Q2

REPORT INFORMATION
  Report Type: 
  Country: None (occurrence: None)
  Receive Date: 20120628
  Receipt Date: 20120615
  Transmission Date: 20120825
  Serious: Yes (Other)
  Sender: FDA-Public Use
  Company Number: 2012SP033135

PATIENT
  Age: 66 Year
  Sex: Female

DRUGS (8)
  1. NEXIUM [Concomitant]
  2. ZOFRAN [Concomitant]
  3. ACETAMINOPHEN [Concomitant]
  4. LYRICA [Concomitant]
  5. TEMODAL [Suspect]
     Indication: GLIOBLASTOMA
     Dosage: PO  ;160 MG;PO
     Route: 048
     Dates: start: 20111108, end: 20120524
  6. TEMODAL [Suspect]
     Indication: GLIOBLASTOMA
     Dosage: PO  ;160 MG;PO
     Route: 048
     Dates: start: 20080501, end: 20081201
  7. MUPHORAN (FOTEMUSTINE) [Suspect]
     Indication: GLIOBLASTOMA
     Dosage: 150 MG;IV
     Route: 042
     Dates: start: 20111108, end: 20120524
  8. PREDNISOLONE [Concomitant]

REACTIONS (2)
  - MIXED LIVER INJURY [None]
  - GASTROINTESTINAL DISORDER [None]
